FAERS Safety Report 8368668 (Version 2)
Quarter: 2013Q1

REPORT INFORMATION
  Report Type: Report from Study
  Country: US (occurrence: US)
  Receive Date: 20120128
  Receipt Date: 20130131
  Transmission Date: 20140127
  Serious: No
  Sender: FDA-Public Use
  Company Number: US-ABBOTT-11P-163-0731752-00

PATIENT
  Age: 49 Year
  Sex: Female

DRUGS (5)
  1. HUMIRA [Suspect]
     Indication: CROHN^S DISEASE
     Dates: start: 201105
  2. NEURONTIN [Concomitant]
     Indication: GASTROINTESTINAL PAIN
     Route: 048
  3. NEURONTIN [Concomitant]
     Indication: NEURALGIA
  4. NEURONTIN [Concomitant]
     Indication: TREMOR
  5. B12 [Concomitant]
     Indication: VITAMIN SUPPLEMENTATION

REACTIONS (4)
  - Furuncle [Unknown]
  - Pruritus [Unknown]
  - Psoriasis [Unknown]
  - Drug hypersensitivity [Not Recovered/Not Resolved]
